FAERS Safety Report 4602541-0 (Version None)
Quarter: 2005Q1

REPORT INFORMATION
  Report Type: 
  Country: None (occurrence: None)
  Receive Date: 20050309
  Receipt Date: 20050301
  Transmission Date: 20050727
  Serious: Yes (Life-Threatening, Hospitalization)
  Sender: FDA-Public Use
  Company Number: US-KINGPHARMUSA00001-K200500292

PATIENT
  Age: 77 Year
  Sex: Female

DRUGS (5)
  1. ALTACE [Suspect]
     Indication: CARDIAC FAILURE CONGESTIVE
     Dosage: 5 MG, BID
     Route: 048
     Dates: start: 19990101
  2. FRUSEMIDE [Suspect]
     Indication: CARDIAC FAILURE CONGESTIVE
     Dosage: 40 MG, QD
     Route: 048
     Dates: start: 19990101
  3. BISOPROLOL FUMARATE [Concomitant]
     Indication: CARDIAC FAILURE CONGESTIVE
     Dosage: 10 MG, QD
     Route: 048
  4. COMBIVENT /GFR/ [Concomitant]
     Indication: CHRONIC OBSTRUCTIVE PULMONARY DISEASE
     Dosage: 2 UNK, QID
  5. FLIXOTIDE ^ALLEN + HANBURYS^ [Concomitant]
     Indication: CHRONIC OBSTRUCTIVE PULMONARY DISEASE
     Dosage: 250 UG, TID

REACTIONS (3)
  - DERMATITIS EXFOLIATIVE [None]
  - SEPSIS [None]
  - STAPHYLOCOCCAL INFECTION [None]
